FAERS Safety Report 25056749 (Version 1)
Quarter: 2025Q1

REPORT INFORMATION
  Report Type: Spontaneous
  Country: IT (occurrence: IT)
  Receive Date: 20250310
  Receipt Date: 20250310
  Transmission Date: 20250409
  Serious: Yes (Other)
  Sender: ASTELLAS
  Company Number: IT-GILEAD-2025-0705261

PATIENT
  Age: 76 Year
  Sex: Male

DRUGS (1)
  1. AMPHOTERICIN B [Suspect]
     Active Substance: AMPHOTERICIN B
     Indication: Fungal rhinitis
     Route: 065

REACTIONS (4)
  - Hypokalaemia [Unknown]
  - Weight decreased [Unknown]
  - Decreased appetite [Unknown]
  - Magnesium deficiency [Unknown]
